FAERS Safety Report 24240764 (Version 1)
Quarter: 2024Q3

REPORT INFORMATION
  Report Type: Spontaneous
  Country: EC (occurrence: EC)
  Receive Date: 20240823
  Receipt Date: 20240823
  Transmission Date: 20241016
  Serious: Yes (Hospitalization)
  Sender: NOVO NORDISK
  Company Number: EC-NOVOPROD-1268935

PATIENT
  Age: 27 Year
  Sex: Female
  Weight: 67 kg

DRUGS (2)
  1. SAXENDA [Suspect]
     Active Substance: LIRAGLUTIDE
     Indication: Insulin resistance
  2. SAXENDA [Suspect]
     Active Substance: LIRAGLUTIDE
     Indication: Overweight
     Dosage: 1.2 MG, QD
     Route: 058
     Dates: start: 20240726

REACTIONS (5)
  - Gastrointestinal disorder [Recovered/Resolved]
  - Food intolerance [Recovered/Resolved]
  - Blood sodium decreased [Recovered/Resolved]
  - Gastrointestinal pain [Recovered/Resolved]
  - Vomiting [Recovered/Resolved]

NARRATIVE: CASE EVENT DATE: 20240726
